FAERS Safety Report 23323964 (Version 2)
Quarter: 2024Q1

REPORT INFORMATION
  Report Type: Report from Study
  Country: US (occurrence: US)
  Receive Date: 20231221
  Receipt Date: 20240116
  Transmission Date: 20240410
  Serious: Yes (Other)
  Sender: FDA-Public Use
  Company Number: US-BRISTOL-MYERS SQUIBB COMPANY-2023-183563

PATIENT
  Age: 64 Year
  Sex: Female
  Weight: 63.05 kg

DRUGS (2)
  1. ORENCIA [Suspect]
     Active Substance: ABATACEPT
     Indication: Product used for unknown indication
  2. MAGNESIUM PHOSPHATE [Concomitant]
     Active Substance: MAGNESIUM PHOSPHATE, TRIBASIC, PENTAHYDRATE
     Indication: Hypertension
     Dosage: 6X

REACTIONS (2)
  - Injury associated with device [Unknown]
  - Contusion [Unknown]
